FAERS Safety Report 5723889-2 (Version None)
Quarter: 2008Q2

REPORT INFORMATION
  Report Type: 
  Country: None (occurrence: None)
  Receive Date: 20080430
  Receipt Date: 20080418
  Transmission Date: 20081010
  Serious: Yes (Hospitalization)
  Sender: FDA-Public Use
  Company Number: CH-GILEAD-2008-0016119

PATIENT
  Age: 50 Year
  Sex: Male

DRUGS (5)
  1. VIREAD [Suspect]
  2. KALETRA [Suspect]
     Indication: HIV INFECTION
  3. ZIAGEN [Suspect]
     Route: 048
  4. DARAPRIM [Suspect]
     Indication: TOXOPLASMOSIS
     Route: 048
  5. CLINDAMYCIN [Concomitant]
     Route: 048

REACTIONS (1)
  - PANCYTOPENIA [None]
